FAERS Safety Report 11251535 (Version 1)
Quarter: 2015Q3

REPORT INFORMATION
  Report Type: Spontaneous
  Country: US (occurrence: US)
  Receive Date: 20150708
  Receipt Date: 20150708
  Transmission Date: 20151125
  Serious: No
  Sender: FDA-Public Use
  Company Number: US-ELI_LILLY_AND_COMPANY-US201202005517

PATIENT
  Age: 67 Year
  Sex: Female
  Weight: 60.7 kg

DRUGS (10)
  1. FOLIC ACID. [Concomitant]
     Active Substance: FOLIC ACID
     Dosage: UNK
     Dates: start: 201103
  2. VITAMIN B [Concomitant]
     Active Substance: VITAMIN B
  3. VITAMIN B12 [Concomitant]
     Active Substance: CYANOCOBALAMIN
     Dosage: 1000 UG, UNK
     Dates: start: 201103
  4. VITAMIN D [Concomitant]
     Active Substance: CHOLECALCIFEROL
  5. VITAMIN C [Concomitant]
     Active Substance: ASCORBIC ACID
  6. MAGNESIUM [Concomitant]
     Active Substance: MAGNESIUM
  7. ALIMTA [Suspect]
     Active Substance: PEMETREXED DISODIUM
     Indication: NON-SMALL CELL LUNG CANCER
     Dosage: 500 MG/M2, ONCE EVERY 3 WEEKS
     Route: 042
     Dates: start: 201103
  8. CORTICOSTEROID NOS [Concomitant]
     Active Substance: CORTICOSTEROID NOS
     Dosage: UNK
     Dates: start: 201103
  9. MULTIVITAMIN [Concomitant]
     Active Substance: VITAMINS
  10. CALTRATE +D [Concomitant]

REACTIONS (2)
  - Periorbital oedema [Recovering/Resolving]
  - Eye pruritus [Recovering/Resolving]

NARRATIVE: CASE EVENT DATE: 20120110
